FAERS Safety Report 15051373 (Version 1)
Quarter: 2018Q2

REPORT INFORMATION
  Report Type: Spontaneous
  Country: US (occurrence: US)
  Receive Date: 20180622
  Receipt Date: 20180622
  Transmission Date: 20180711
  Serious: No
  Sender: FDA-Public Use
  Company Number: US-TEVA-2018-US-901885

PATIENT
  Sex: Female

DRUGS (1)
  1. COPAXONE [Suspect]
     Active Substance: GLATIRAMER ACETATE
     Dosage: UNKNOWN DOSAGE STRENGTH
     Route: 065

REACTIONS (4)
  - Emotional distress [Unknown]
  - Tremor [Unknown]
  - Mental fatigue [Unknown]
  - Malaise [Unknown]
